FAERS Safety Report 9355674 (Version 1)
Quarter: 2013Q2

REPORT INFORMATION
  Report Type: Spontaneous
  Country: ES (occurrence: ES)
  Receive Date: 20130619
  Receipt Date: 20130619
  Transmission Date: 20140414
  Serious: Yes (Other)
  Sender: FDA-Public Use
  Company Number: ES-ASTRAZENECA-2013SE42512

PATIENT
  Age: 26 Year
  Sex: Female

DRUGS (1)
  1. EMLA CREAM [Suspect]
     Route: 061
     Dates: start: 20130328, end: 20130328

REACTIONS (1)
  - Asthma [Recovered/Resolved]
